FAERS Safety Report 6614106-X (Version None)
Quarter: 2010Q1

REPORT INFORMATION
  Report Type: 
  Country: None (occurrence: None)
  Receive Date: 20100304
  Receipt Date: 20100228
  Transmission Date: 20100710
  Serious: Yes (Death, Life-Threatening, Hospitalization)
  Sender: FDA-Public Use
  Company Number: PHHO2009CN12424

PATIENT
  Sex: Male
  Weight: 80 kg

DRUGS (3)
  1. ALISKIREN ALI+TAB+CVR [Suspect]
     Indication: CARDIOVASCULAR DISORDER
     Dosage: UNK
     Route: 048
     Dates: start: 20090828, end: 20091004
  2. FUROSEMIDE [Concomitant]
  3. MONOPRIL [Concomitant]

REACTIONS (16)
  - ANURIA [None]
  - CARDIAC ARREST [None]
  - CARDIAC FAILURE [None]
  - COAGULOPATHY [None]
  - COMA [None]
  - DIABETIC NEPHROPATHY [None]
  - DISEASE PROGRESSION [None]
  - DYSPNOEA [None]
  - FATIGUE [None]
  - HAEMOPTYSIS [None]
  - HYPERKALAEMIA [None]
  - HYPERTENSION [None]
  - OEDEMA [None]
  - PYREXIA [None]
  - RENAL FAILURE [None]
  - SYNCOPE [None]
